FAERS Safety Report 5239099-1 (Version None)
Quarter: 2007Q2

REPORT INFORMATION
  Report Type: 
  Country: None (occurrence: None)
  Receive Date: 20070209
  Receipt Date: 20070125
  Transmission Date: 20071010
  Serious: Yes (Hospitalization)
  Sender: FDA-Public Use
  Company Number: AZAFR200700017

PATIENT
  Age: 70 Year
  Sex: Male
  Weight: 79 kg

DRUGS (13)
  1. AZACITIDINE (AZACITIDINE) (INJECTION) [Suspect]
     Indication: MYELODYSPLASTIC SYNDROME
     Dosage: 75 MG/M2 (DAILY X 7 DAYS), SUBCUTANEOUS
     Route: 058
     Dates: start: 20061218, end: 20061224
  2. ALLOPURINOL [Concomitant]
  3. ATACAND [Concomitant]
  4. COLCHIMAX (COLCHIMAX) [Concomitant]
  5. SOLU-MEDROL [Concomitant]
  6. ACUPAN [Concomitant]
  7. DIPROSONE [Concomitant]
  8. OMEPRAZOLE [Concomitant]
  9. DEBRIDAT (TRIMEBUTINE) [Concomitant]
  10. SPASFON (SPASFON) (TABLETS) [Concomitant]
  11. DI-ANTALVIC (APOREX) (TABLETS) [Concomitant]
  12. INEXIUM (ESOMEPRAZOLE) [Concomitant]
  13. DESLORATADINE [Concomitant]

REACTIONS (8)
  - ARTERIOSCLEROSIS [None]
  - CALCINOSIS [None]
  - GASTROINTESTINAL ISCHAEMIA [None]
  - GENERAL PHYSICAL HEALTH DETERIORATION [None]
  - ILEITIS [None]
  - LYMPHADENOPATHY [None]
  - PRURITUS [None]
  - SUBILEUS [None]
